FAERS Safety Report 5924811-6 (Version None)
Quarter: 2008Q4

REPORT INFORMATION
  Report Type: 
  Country: None (occurrence: None)
  Receive Date: 20081020
  Receipt Date: 20081020
  Transmission Date: 20090506
  Serious: Yes (Other)
  Sender: FDA-Public Use
  Company Number: None

PATIENT
  Age: 40 Year
  Sex: Female
  Weight: 61.6892 kg

DRUGS (1)
  1. OXCARBAZEPINE [Suspect]
     Indication: PARTIAL SEIZURES
     Dosage: 300 MG TABS 2 TABS BID
     Dates: start: 20080901

REACTIONS (2)
  - GRAND MAL CONVULSION [None]
  - THERAPEUTIC RESPONSE UNEXPECTED WITH DRUG SUBSTITUTION [None]
